FAERS Safety Report 7269318-1 (Version None)
Quarter: 2011Q1

REPORT INFORMATION
  Report Type: 
  Country: None (occurrence: None)
  Receive Date: 20110125
  Receipt Date: 20110120
  Transmission Date: 20110831
  Serious: Yes (Other)
  Sender: FDA-Public Use
  Company Number: 2010SP055037

PATIENT
  Age: 50 Year
  Sex: Male

DRUGS (1)
  1. ESLAX (ROCURONIUM BROMIDE /01245702/) [Suspect]
     Indication: NEUROMUSCULAR BLOCKING THERAPY
     Dosage: IV
     Route: 042

REACTIONS (2)
  - ENDOTRACHEAL INTUBATION COMPLICATION [None]
  - LARYNGEAL OBSTRUCTION [None]
